FAERS Safety Report 8895533 (Version 2)
Quarter: 2013Q1

REPORT INFORMATION
  Report Type: Report from Study
  Country: US (occurrence: US)
  Receive Date: 20121108
  Receipt Date: 20130116
  Transmission Date: 20140127
  Serious: No
  Sender: FDA-Public Use
  Company Number: US-VERTEX PHARMACEUTICAL INC.-2012-024224

PATIENT
  Sex: Male

DRUGS (14)
  1. VX-950 (TELAPREVIR) [Suspect]
     Indication: HEPATITIS C
     Dosage: 750 MG, TID
     Route: 048
     Dates: start: 2012
  2. PEGASYS [Suspect]
     Indication: HEPATITIS C
     Dosage: 180 ?G, QW
     Route: 058
     Dates: start: 2012
  3. RIBASPHERE [Suspect]
     Indication: HEPATITIS C
     Dosage: 600 MG, BID
     Route: 048
     Dates: start: 2012
  4. BENEFIBER POWDER [Concomitant]
     Dosage: UNK, QD
  5. ATENOLOL [Concomitant]
     Dosage: UNK, QD
  6. LISINOPRIL [Concomitant]
     Dosage: UNK, QD
  7. FLONASE [Concomitant]
     Dosage: 0.05 %, UNK
  8. SPIRONOLACTONE [Concomitant]
     Dosage: UNK, QD
  9. OMEPRAZOLE -DR [Concomitant]
  10. DOCUSATE SODIUM [Concomitant]
     Dosage: UNK, QD
  11. MULTIVITAMIN MEN [Concomitant]
     Dosage: UNK, QD
  12. PSYLLIUM HUSK POWDER [Concomitant]
  13. GLUCOSAMINE CHONDR COMPLEX [Concomitant]
  14. PROCRIT [Concomitant]
     Dosage: 40000 UT, QW

REACTIONS (5)
  - Insomnia [Unknown]
  - Injection site pruritus [Unknown]
  - Injection site erythema [Unknown]
  - Dry skin [Unknown]
  - Nausea [Unknown]
